FAERS Safety Report 4384223-6 (Version None)
Quarter: 2004Q2

REPORT INFORMATION
  Report Type: 
  Country: None (occurrence: None)
  Receive Date: 20040607
  Receipt Date: 20040225
  Transmission Date: 20050107
  Serious: Yes (Other)
  Sender: FDA-Public Use
  Company Number: 257128

PATIENT
  Sex: Male
  Weight: 3.5 kg

DRUGS (1)
  1. ACCUTANE [Suspect]
     Indication: ACNE
     Dosage: ORAL
     Route: 048
     Dates: start: 19980615, end: 19980615

REACTIONS (4)
  - FOETAL HEART RATE INCREASED [None]
  - HEAD DEFORMITY [None]
  - ILL-DEFINED DISORDER [None]
  - NORMAL NEWBORN [None]
